FAERS Safety Report 20709295 (Version 1)
Quarter: 2022Q2

REPORT INFORMATION
  Report Type: 
  Country: None (occurrence: None)
  Receive Date: 20220414
  Receipt Date: 20220414
  Transmission Date: 20220721
  Serious: No
  Sender: FDA-Public Use
  Company Number: None

PATIENT
  Sex: Male

DRUGS (1)
  1. LACTULOSE [Suspect]
     Active Substance: LACTULOSE

REACTIONS (3)
  - Therapeutic product effect delayed [Recovered/Resolved]
  - Intentional product use issue [Recovered/Resolved]
  - Product physical consistency issue [Recovered/Resolved]
